FAERS Safety Report 4423221-0 (Version None)
Quarter: 2004Q3

REPORT INFORMATION
  Report Type: 
  Country: None (occurrence: None)
  Receive Date: 20040713
  Receipt Date: 20031015
  Transmission Date: 20050211
  Serious: No
  Sender: FDA-Public Use
  Company Number: PHEH2003US09518

PATIENT
  Age: 5 Year
  Sex: Female

DRUGS (1)
  1. ELIDEL [Suspect]
     Dosage: TOPICAL
     Route: 061

REACTIONS (4)
  - APPLICATION SITE BURNING [None]
  - CHILLS [None]
  - HEART RATE INCREASED [None]
  - PYREXIA [None]
